FAERS Safety Report 11984375 (Version 1)
Quarter: 2016Q1

REPORT INFORMATION
  Report Type: Spontaneous
  Country: US (occurrence: US)
  Receive Date: 20160201
  Receipt Date: 20160201
  Transmission Date: 20160526
  Serious: No
  Sender: FDA-Public Use
  Company Number: US-KADMON PHARMACEUTICALS, LLC-KAD201507-002328

PATIENT
  Sex: Female

DRUGS (6)
  1. RIBAVIRIN. [Suspect]
     Active Substance: RIBAVIRIN
  2. INTERFERON [Suspect]
     Active Substance: INTERFERON
     Indication: HEPATITIS C
  3. XANAX [Concomitant]
     Active Substance: ALPRAZOLAM
  4. PEGASYS [Suspect]
     Active Substance: PEGINTERFERON ALFA-2A
     Indication: HEPATITIS C
  5. RIBAVIRIN. [Suspect]
     Active Substance: RIBAVIRIN
     Indication: HEPATITIS C
  6. VALIUM [Concomitant]
     Active Substance: DIAZEPAM

REACTIONS (7)
  - Anger [Unknown]
  - Hyperhidrosis [Unknown]
  - Viral load increased [Unknown]
  - Adverse drug reaction [Unknown]
  - Neuropathy peripheral [Unknown]
  - Thyroid disorder [Unknown]
  - No therapeutic response [Unknown]
